FAERS Safety Report 4777155-2 (Version None)
Quarter: 2005Q3

REPORT INFORMATION
  Report Type: 
  Country: None (occurrence: None)
  Receive Date: 20050923
  Receipt Date: 20050913
  Transmission Date: 20060218
  Serious: Yes (Hospitalization)
  Sender: FDA-Public Use
  Company Number: IT-ROCHE-417842

PATIENT
  Age: 19 Year
  Sex: Female

DRUGS (1)
  1. ROACCUTAN [Suspect]
     Indication: ACNE
     Route: 048
     Dates: start: 20050421, end: 20050721

REACTIONS (5)
  - AFFECT LABILITY [None]
  - AGITATION [None]
  - NAUSEA [None]
  - VERTIGO [None]
  - VOMITING [None]
